FAERS Safety Report 5588487-2 (Version None)
Quarter: 2008Q1

REPORT INFORMATION
  Report Type: 
  Country: None (occurrence: None)
  Receive Date: 20080111
  Receipt Date: 20080101
  Transmission Date: 20080703
  Serious: Yes (Hospitalization)
  Sender: FDA-Public Use
  Company Number: JP-ROCHE-539604

PATIENT
  Age: 5 Year
  Sex: Female

DRUGS (7)
  1. TAMIFLU [Suspect]
     Indication: INFLUENZA
     Route: 048
     Dates: start: 20071230
  2. MUCODYNE [Concomitant]
     Dosage: DRUG NAME: MUCODYNE DS
  3. MUCOSOLVAN [Concomitant]
     Dosage: DRUG NAME: MUCOSOLVAN DS
  4. ASVERIN [Concomitant]
  5. TERBUTALINE SULFATE [Concomitant]
     Dosage: DRUG NAME: CONVON (TERBUTALINE SULFATE)
  6. PERIACTIN [Concomitant]
  7. HOKUNALIN [Concomitant]
     Dosage: DRUG: HOKUNALIN: TAPE

REACTIONS (4)
  - ABNORMAL BEHAVIOUR [None]
  - CONVULSION NEONATAL [None]
  - HALLUCINATION [None]
  - HALLUCINATION, AUDITORY [None]
